FAERS Safety Report 7163213-4 (Version None)
Quarter: 2010Q4

REPORT INFORMATION
  Report Type: 
  Country: None (occurrence: None)
  Receive Date: 20101215
  Receipt Date: 20100315
  Transmission Date: 20110411
  Serious: Yes (Other)
  Sender: FDA-Public Use
  Company Number: AU-PFIZER INC-2010011920

PATIENT
  Sex: Female
  Weight: 60 kg

DRUGS (2)
  1. LYRICA [Suspect]
     Indication: SCIATICA
     Dosage: 75 MG, 1X/DAY
     Route: 048
     Dates: start: 20100125, end: 20100128
  2. CORTISONE [Concomitant]
     Indication: PAIN
     Dosage: 12.5 MG, 1X/DAY AT NIGHT
     Route: 048
     Dates: start: 20100125, end: 20100203

REACTIONS (5)
  - ANXIETY [None]
  - FEELING JITTERY [None]
  - HYPERVIGILANCE [None]
  - INSOMNIA [None]
  - PSYCHOMOTOR HYPERACTIVITY [None]
